FAERS Safety Report 25791183 (Version 1)
Quarter: 2025Q3

REPORT INFORMATION
  Report Type: Report from Study
  Country: CN (occurrence: CN)
  Receive Date: 20250911
  Receipt Date: 20250911
  Transmission Date: 20251021
  Serious: Yes (Other)
  Sender: ROCHE
  Company Number: CN-ROCHE-10000314996

PATIENT
  Age: 42 Year
  Sex: Male
  Weight: 74 kg

DRUGS (31)
  1. POLATUZUMAB VEDOTIN [Suspect]
     Active Substance: POLATUZUMAB VEDOTIN
     Indication: Diffuse large B-cell lymphoma
     Route: 042
     Dates: start: 20241230, end: 20241230
  2. POLATUZUMAB VEDOTIN [Suspect]
     Active Substance: POLATUZUMAB VEDOTIN
     Route: 042
     Dates: start: 20250427, end: 20250427
  3. ZANUBRUTINIB [Suspect]
     Active Substance: ZANUBRUTINIB
     Indication: Diffuse large B-cell lymphoma
     Route: 048
     Dates: start: 20241227, end: 20250206
  4. ZANUBRUTINIB [Suspect]
     Active Substance: ZANUBRUTINIB
     Route: 048
     Dates: start: 20250427
  5. SINTILIMAB [Suspect]
     Active Substance: SINTILIMAB
     Indication: Diffuse large B-cell lymphoma
     Route: 042
     Dates: start: 20241230, end: 20241230
  6. SINTILIMAB [Suspect]
     Active Substance: SINTILIMAB
     Route: 042
     Dates: start: 20250427, end: 20250427
  7. MOSAPRIDE [Concomitant]
     Active Substance: MOSAPRIDE
     Route: 048
     Dates: start: 20241222
  8. ENTECAVIR [Concomitant]
     Active Substance: ENTECAVIR
     Route: 048
     Dates: start: 20241222
  9. SODIUM BICARBONATE [Concomitant]
     Active Substance: SODIUM BICARBONATE
     Route: 042
     Dates: start: 20250303, end: 20250311
  10. SODIUM BICARBONATE [Concomitant]
     Active Substance: SODIUM BICARBONATE
     Route: 042
     Dates: start: 20250425, end: 20250427
  11. SODIUM BICARBONATE [Concomitant]
     Active Substance: SODIUM BICARBONATE
     Route: 042
     Dates: start: 20250508, end: 20250619
  12. ESOMEPRAZOLE SODIUM [Concomitant]
     Active Substance: ESOMEPRAZOLE SODIUM
     Route: 042
     Dates: start: 20250303, end: 20250311
  13. ESOMEPRAZOLE SODIUM [Concomitant]
     Active Substance: ESOMEPRAZOLE SODIUM
     Route: 042
     Dates: start: 20250508, end: 20250625
  14. ETHAMSYLATE [Concomitant]
     Active Substance: ETHAMSYLATE
     Route: 042
     Dates: start: 20250305, end: 20250311
  15. VITAMIN K1 [Concomitant]
     Active Substance: PHYTONADIONE
     Route: 042
     Dates: start: 20250305, end: 20250311
  16. Recombinant  Human Thrombopoietin [Concomitant]
     Dosage: DOSE: 1500U
     Route: 058
     Dates: start: 20250305, end: 20250311
  17. POTASSIUM CHLORIDE [Concomitant]
     Active Substance: POTASSIUM CHLORIDE
     Route: 048
     Dates: start: 20250304
  18. POTASSIUM CHLORIDE [Concomitant]
     Active Substance: POTASSIUM CHLORIDE
     Route: 048
     Dates: start: 20250304
  19. METHYLPREDNISOLONE SODIUM SUCCINATE [Concomitant]
     Active Substance: METHYLPREDNISOLONE SODIUM SUCCINATE
     Route: 042
     Dates: start: 20250305, end: 20250305
  20. PROMETHAZINE [Concomitant]
     Active Substance: PROMETHAZINE HYDROCHLORIDE
     Route: 030
     Dates: start: 20250427, end: 20250427
  21. PROMETHAZINE [Concomitant]
     Active Substance: PROMETHAZINE HYDROCHLORIDE
     Route: 042
     Dates: start: 20250305, end: 20250305
  22. ACETAMINOPHEN [Concomitant]
     Active Substance: ACETAMINOPHEN
     Route: 048
     Dates: start: 20250305, end: 20250305
  23. LORATADINE [Concomitant]
     Active Substance: LORATADINE
     Route: 048
     Dates: start: 20250305, end: 20250305
  24. ROMIPLOSTIM [Concomitant]
     Active Substance: ROMIPLOSTIM
     Route: 058
     Dates: start: 20250305, end: 20250305
  25. ROMIPLOSTIM [Concomitant]
     Active Substance: ROMIPLOSTIM
     Route: 058
     Dates: start: 20250310, end: 20250310
  26. ANF-RHO [Concomitant]
     Active Substance: ANF-RHO
     Route: 058
     Dates: start: 20250305, end: 20250305
  27. ANF-RHO [Concomitant]
     Active Substance: ANF-RHO
     Route: 058
     Dates: start: 20250310, end: 20250310
  28. CALCIUM GLUCONATE [Concomitant]
     Active Substance: CALCIUM GLUCONATE
     Route: 042
     Dates: start: 20250310, end: 20250310
  29. RAFUTROMBOPAG OLAMINE [Concomitant]
     Active Substance: RAFUTROMBOPAG OLAMINE
     Route: 048
     Dates: start: 20250311
  30. ESOMEPRAZOLE [Concomitant]
     Active Substance: ESOMEPRAZOLE
     Route: 042
     Dates: start: 20250425, end: 20250427
  31. ACETAMINOPHEN [Concomitant]
     Active Substance: ACETAMINOPHEN
     Route: 048
     Dates: start: 20250427, end: 20250427

REACTIONS (2)
  - White blood cell count decreased [Not Recovered/Not Resolved]
  - Neutrophil count decreased [Recovered/Resolved]

NARRATIVE: CASE EVENT DATE: 20250303
